FAERS Safety Report 9470232 (Version 1)
Quarter: 2013Q3

REPORT INFORMATION
  Report Type: Spontaneous
  Country: US (occurrence: US)
  Receive Date: 20130822
  Receipt Date: 20130822
  Transmission Date: 20140515
  Serious: No
  Sender: FDA-Public Use
  Company Number: US-SANOFI-AVENTIS-2013SA036074

PATIENT
  Age: 90 Year
  Sex: Male

DRUGS (1)
  1. MULTAQ [Suspect]
     Indication: ATRIAL FIBRILLATION
     Dosage: TAKEN FROM:ABOUT 1.5 YEARS AGO
     Route: 048

REACTIONS (2)
  - Pruritus [Not Recovered/Not Resolved]
  - Alopecia [Not Recovered/Not Resolved]
